FAERS Safety Report 15894450 (Version 1)
Quarter: 2019Q1

REPORT INFORMATION
  Report Type: Spontaneous
  Country: JP (occurrence: JP)
  Receive Date: 20190131
  Receipt Date: 20190131
  Transmission Date: 20190417
  Serious: Yes (Hospitalization)
  Sender: FDA-Public Use
  Company Number: JP-UCBSA-2019003147

PATIENT
  Age: 19 Year
  Sex: Female

DRUGS (7)
  1. MYSTAN [Concomitant]
     Active Substance: CLOBAZAM
     Indication: EPILEPSY
     Dosage: 7.5 MG
     Route: 048
  2. VIMPAT [Suspect]
     Active Substance: LACOSAMIDE
     Indication: EPILEPSY
     Dosage: 100 MG DAILY
     Route: 048
     Dates: start: 201803
  3. MYSTAN [Concomitant]
     Active Substance: CLOBAZAM
     Dosage: 5 MG
     Dates: start: 20180921
  4. VIMPAT [Suspect]
     Active Substance: LACOSAMIDE
     Indication: PARTIAL SEIZURES
     Dosage: 200 MG, 2X/DAY (BID)
     Route: 048
     Dates: start: 20180921
  5. TOPINA [Concomitant]
     Active Substance: TOPIRAMATE
     Indication: EPILEPSY
     Route: 048
  6. E KEPPRA [Concomitant]
     Active Substance: LEVETIRACETAM
     Indication: EPILEPSY
     Route: 048
  7. HYDANTOL [Concomitant]
     Active Substance: PHENYTOIN SODIUM
     Indication: EPILEPSY
     Route: 048

REACTIONS (2)
  - Anticonvulsant drug level decreased [Recovering/Resolving]
  - Status epilepticus [Unknown]

NARRATIVE: CASE EVENT DATE: 20180922
